FAERS Safety Report 4761215-6 (Version None)
Quarter: 2005Q3

REPORT INFORMATION
  Report Type: 
  Country: None (occurrence: None)
  Receive Date: 20050901
  Receipt Date: 20050406
  Transmission Date: 20060218
  Serious: Yes (Hospitalization)
  Sender: FDA-Public Use
  Company Number: 2005FR-00247

PATIENT
  Age: 69 Year
  Sex: Female

DRUGS (6)
  1. ASPIRIN [Suspect]
     Indication: PROPHYLAXIS
     Dosage: 75 MG, ORAL
     Route: 048
     Dates: end: 20050315
  2. GABAPENTIN [Concomitant]
  3. ACETAMINOPHEN W/ CODEINE [Concomitant]
  4. AMITRIPTYLINE HCL [Concomitant]
  5. FUROSEMIDE [Concomitant]
  6. RAMIPRIL [Concomitant]

REACTIONS (3)
  - ANAEMIA [None]
  - BLOOD CREATININE INCREASED [None]
  - BLOOD UREA INCREASED [None]
